FAERS Safety Report 20469235 (Version 1)
Quarter: 2022Q1

REPORT INFORMATION
  Report Type: Spontaneous
  Country: GB (occurrence: GB)
  Receive Date: 20220214
  Receipt Date: 20220214
  Transmission Date: 20220423
  Serious: Yes (Other)
  Sender: FDA-Public Use
  Company Number: GB-MYLANLABS-2022M1001981

PATIENT
  Age: 67 Year
  Sex: Male

DRUGS (7)
  1. VENLAFAXINE [Suspect]
     Active Substance: VENLAFAXINE HYDROCHLORIDE
     Indication: Depression
     Dosage: 225 MILLIGRAM, QD
  2. MIRTAZAPINE [Suspect]
     Active Substance: MIRTAZAPINE
     Indication: Depression
     Dosage: 30 MILLIGRAM, QD
  3. OLANZAPINE [Suspect]
     Active Substance: OLANZAPINE
     Indication: Psychotic symptom
     Dosage: 20 MILLIGRAM, QD
  4. LORAZEPAM [Suspect]
     Active Substance: LORAZEPAM
     Indication: Psychotic symptom
     Dosage: 0.5 MILLIGRAM, PRN
  5. LORAZEPAM [Suspect]
     Active Substance: LORAZEPAM
     Dosage: 5 MILLIGRAM, PRN
  6. PHENYTOIN [Concomitant]
     Active Substance: PHENYTOIN
     Indication: Epilepsy
     Dosage: 200 MILLIGRAM, BID
  7. PHENYTOIN [Concomitant]
     Active Substance: PHENYTOIN
     Dosage: 200 MILLIGRAM

REACTIONS (1)
  - Drug ineffective [Unknown]
